FAERS Safety Report 7428304-9 (Version None)
Quarter: 2011Q2

REPORT INFORMATION
  Report Type: 
  Country: None (occurrence: None)
  Receive Date: 20110421
  Receipt Date: 20110412
  Transmission Date: 20111010
  Serious: No
  Sender: FDA-Public Use
  Company Number: US-BIOGENIDEC-2011BI014533

PATIENT
  Age: 50 Year
  Sex: Female

DRUGS (1)
  1. TYSABRI [Suspect]
     Indication: MULTIPLE SCLEROSIS
     Route: 042
     Dates: start: 20101122

REACTIONS (12)
  - DYSURIA [None]
  - MUSCULOSKELETAL PAIN [None]
  - GENERAL SYMPTOM [None]
  - INFREQUENT BOWEL MOVEMENTS [None]
  - FATIGUE [None]
  - BACK PAIN [None]
  - GASTROINTESTINAL DISORDER [None]
  - MUSCULAR WEAKNESS [None]
  - ARTHRALGIA [None]
  - NECK PAIN [None]
  - VISION BLURRED [None]
  - DYSKINESIA [None]
